FAERS Safety Report 20182403 (Version 1)
Quarter: 2021Q4

REPORT INFORMATION
  Report Type: Spontaneous
  Country: US (occurrence: None)
  Receive Date: 20211214
  Receipt Date: 20211214
  Transmission Date: 20220303
  Serious: No
  Sender: FDA-Public Use
  Company Number: None

PATIENT

DRUGS (2)
  1. FLEET MINERAL OIL [Suspect]
     Active Substance: MINERAL OIL
  2. FLEET ENEMA [Suspect]
     Active Substance: SODIUM PHOSPHATE, DIBASIC\SODIUM PHOSPHATE, MONOBASIC

REACTIONS (2)
  - Product packaging confusion [None]
  - Product label issue [None]
